FAERS Safety Report 7384820-X (Version None)
Quarter: 2011Q1

REPORT INFORMATION
  Report Type: 
  Country: None (occurrence: None)
  Receive Date: 20110330
  Receipt Date: 20100817
  Transmission Date: 20110831
  Serious: Yes (Hospitalization, Other)
  Sender: FDA-Public Use
  Company Number: US-BAYER-200944112NA

PATIENT
  Sex: Female

DRUGS (6)
  1. YASMIN [Suspect]
     Indication: PREMENSTRUAL SYNDROME
     Dosage: 1 DF (DAILY DOSE), QD, ORAL
     Route: 048
     Dates: start: 20070101, end: 20090101
  2. OCELLA [Suspect]
     Indication: PREMENSTRUAL SYNDROME
     Dosage: UNK
     Dates: start: 20070101, end: 20090101
  3. YAZ [Suspect]
     Indication: PREMENSTRUAL SYNDROME
     Dosage: 1 DF (DAILY DOSE), QD, ORAL
     Route: 048
     Dates: start: 20070101, end: 20090101
  4. OCELLA [Suspect]
     Indication: ACNE
  5. YASMIN [Suspect]
     Indication: ACNE
  6. YAZ [Suspect]
     Indication: ACNE

REACTIONS (3)
  - MENTAL DISORDER [None]
  - PULMONARY INFARCTION [None]
  - PULMONARY EMBOLISM [None]
